FAERS Safety Report 4384363-1 (Version None)
Quarter: 2004Q2

REPORT INFORMATION
  Report Type: 
  Country: None (occurrence: None)
  Receive Date: 20040621
  Receipt Date: 20040608
  Transmission Date: 20050107
  Serious: Yes (Hospitalization)
  Sender: FDA-Public Use
  Company Number: 2004218002GB

PATIENT
  Age: 38 Year
  Sex: Female
  Weight: 72.2 kg

DRUGS (4)
  1. FARMORUBICIN (EPIRUBICIN HYDROCHLORIDE) SOLUTION, STERILE [Suspect]
     Indication: BREAST CANCER METASTATIC
     Dosage: 106 MG, TIW, IV
     Route: 042
     Dates: start: 20040216
  2. ZOLEDRONATE (ZOLEDRONIC ACID) [Suspect]
     Indication: METASTASES TO BONE
     Dosage: 4 MG, TIW, IV
     Route: 042
     Dates: start: 20040216
  3. CYCLOPHOSPHAMIDE [Suspect]
     Indication: BREAST CANCER METASTATIC
     Dosage: 1060 MG, TIW, IV
     Route: 042
     Dates: start: 20040216
  4. FERROUS SULFATE TAB [Concomitant]

REACTIONS (8)
  - DIZZINESS [None]
  - EAR PAIN [None]
  - HEADACHE [None]
  - MALAISE [None]
  - MENORRHAGIA [None]
  - NEUTROPENIA [None]
  - UTERINE LEIOMYOMA [None]
  - WHITE BLOOD CELL COUNT DECREASED [None]
